FAERS Safety Report 12976494 (Version 1)
Quarter: 2016Q4

REPORT INFORMATION
  Report Type: Spontaneous
  Country: FR (occurrence: FR)
  Receive Date: 20161127
  Receipt Date: 20161127
  Transmission Date: 20170207
  Serious: Yes (Hospitalization)
  Sender: FDA-Public Use
  Company Number: FR-GUERBET LLC-1060068

PATIENT
  Age: 54 Year
  Sex: Male

DRUGS (1)
  1. OPTIRAY [Suspect]
     Active Substance: IOVERSOL
     Indication: SCAN
     Route: 042
     Dates: start: 20161116, end: 20161116

REACTIONS (7)
  - Type I hypersensitivity [Recovering/Resolving]
  - Anal incontinence [Recovering/Resolving]
  - Laryngeal oedema [Recovering/Resolving]
  - Vomiting [Recovering/Resolving]
  - Cyanosis [Recovering/Resolving]
  - Laryngeal discomfort [Recovering/Resolving]
  - Dyspnoea [Recovering/Resolving]

NARRATIVE: CASE EVENT DATE: 20161116
